FAERS Safety Report 4615251-0 (Version None)
Quarter: 2005Q1

REPORT INFORMATION
  Report Type: 
  Country: None (occurrence: None)
  Receive Date: 20050317
  Receipt Date: 20050314
  Transmission Date: 20050727
  Serious: Yes (Death)
  Sender: FDA-Public Use
  Company Number: DEWYE504115MAR05

PATIENT
  Age: 37 Year
  Sex: Male

DRUGS (2)
  1. TREVILOR RETARD EXTENDED RELEASE [Suspect]
     Indication: DEPRESSION
     Dosage: 225 MG ORAL
     Route: 048
  2. PIPAMPERONE                   (PIPAMPERONE) [Concomitant]

REACTIONS (2)
  - CARDIAC FAILURE ACUTE [None]
  - DRUG LEVEL ABOVE THERAPEUTIC [None]
